FAERS Safety Report 10055626 (Version 1)
Quarter: 2014Q2

REPORT INFORMATION
  Report Type: Spontaneous
  Country: IT (occurrence: IT)
  Receive Date: 20140403
  Receipt Date: 20140403
  Transmission Date: 20141212
  Serious: Yes (Life-Threatening, Other)
  Sender: FDA-Public Use
  Company Number: IT-DRREDDYS-GER/ITL/14/0039344

PATIENT
  Age: 64 Year
  Sex: Male
  Weight: 110 kg

DRUGS (8)
  1. RAMIPRIL [Suspect]
     Indication: MYOCARDIAL ISCHAEMIA
     Dates: start: 20130701, end: 20140206
  2. FUROSEMIDE [Interacting]
     Indication: MYOCARDIAL ISCHAEMIA
     Dates: start: 20130701, end: 20140206
  3. METFORMIN [Interacting]
     Indication: DIABETES MELLITUS
     Route: 048
     Dates: start: 20130110, end: 20140206
  4. COMPETACT [Interacting]
     Indication: DIABETES MELLITUS
     Route: 048
     Dates: start: 20130701, end: 20140206
  5. DILATREND [Concomitant]
     Indication: PRODUCT USED FOR UNKNOWN INDICATION
     Route: 048
     Dates: start: 20130701, end: 20140206
  6. CARDIOASPIRIN [Concomitant]
     Indication: PRODUCT USED FOR UNKNOWN INDICATION
     Route: 048
     Dates: start: 20130701, end: 20140206
  7. LEVEMIR 100 U/ML [Concomitant]
     Indication: PRODUCT USED FOR UNKNOWN INDICATION
     Route: 058
  8. SIVASTIN [Concomitant]
     Indication: PRODUCT USED FOR UNKNOWN INDICATION
     Dates: start: 20130701, end: 20140206

REACTIONS (3)
  - Lactic acidosis [Recovering/Resolving]
  - Renal failure acute [Recovering/Resolving]
  - Drug interaction [Unknown]
